FAERS Safety Report 9246122 (Version 3)
Quarter: 2013Q2

REPORT INFORMATION
  Report Type: Report from Study
  Country: US (occurrence: US)
  Receive Date: 20130422
  Receipt Date: 20130529
  Transmission Date: 20140414
  Serious: Yes (Other)
  Sender: FDA-Public Use
  Company Number: US-ABBOTT-13P-163-1076533-00

PATIENT
  Age: 55 Year
  Sex: Male

DRUGS (6)
  1. HUMIRA [Suspect]
     Indication: RHEUMATOID ARTHRITIS
     Dates: start: 201212
  2. RESTORIL [Concomitant]
     Indication: INSOMNIA
     Dosage: AT BEDTIME
  3. ZANAFLEX [Concomitant]
     Indication: MUSCLE RELAXANT THERAPY
     Dosage: AT BEDTIME
  4. MORPHINE SULFATE PDRX [Concomitant]
     Indication: PAIN
  5. MORPHINE SULFATE PDRX [Concomitant]
     Indication: PAIN
  6. OMEPRAZOLE [Concomitant]
     Indication: ANTACID THERAPY
     Dosage: TWICE DAILY

REACTIONS (5)
  - Cholecystectomy [Unknown]
  - Sinus disorder [Recovering/Resolving]
  - Paranasal sinus hypersecretion [Recovering/Resolving]
  - Nasal congestion [Recovering/Resolving]
  - Pyrexia [Recovering/Resolving]
